FAERS Safety Report 9601734 (Version 1)
Quarter: 2013Q4

REPORT INFORMATION
  Report Type: Spontaneous
  Country: GB (occurrence: None)
  Receive Date: 20131002
  Receipt Date: 20131002
  Transmission Date: 20140711
  Serious: Yes (Hospitalization, Other)
  Sender: FDA-Public Use
  Company Number: ABR_01133_2013

PATIENT
  Age: 67 Year
  Sex: Female

DRUGS (21)
  1. ERYTHROMYCINE [Suspect]
     Indication: CELLULITIS
     Route: 048
     Dates: start: 201210
  2. LEVOFLOXACIN (LEVOFLOXACIN) [Suspect]
     Dosage: (DF ORAL)
  3. ALENDRONIC ACID [Concomitant]
  4. AMITRIPTYLINE HYDROCHLORIDE [Concomitant]
  5. AMLODIPINE [Concomitant]
  6. ATORVASTATIN [Concomitant]
  7. CITALOPRAM [Concomitant]
  8. EXENATIDE [Concomitant]
  9. FOLIC ACID [Concomitant]
  10. FUROSEMIDE [Concomitant]
  11. LANTUS [Concomitant]
  12. LISINOPRIL [Concomitant]
  13. METFORMIN [Concomitant]
  14. METHOTREXATE [Concomitant]
  15. NOVORAPID [Concomitant]
  16. PREDNISOLONE [Concomitant]
  17. PROPANTHELINE [Concomitant]
  18. PYRIDOSTIGMINE [Concomitant]
  19. SPIRONOLACTONE [Concomitant]
  20. WARFARIN [Concomitant]
  21. PENICILLIN /00001802/ [Concomitant]

REACTIONS (4)
  - Cellulitis [None]
  - Treatment failure [None]
  - Disease progression [None]
  - Rash [None]
